FAERS Safety Report 10340849 (Version 1)
Quarter: 2014Q3

REPORT INFORMATION
  Report Type: Spontaneous
  Country: US (occurrence: None)
  Receive Date: 20140722
  Receipt Date: 20140722
  Transmission Date: 20150326
  Serious: Yes (Other)
  Sender: FDA-Public Use
  Company Number: 1937521-2014-00005

PATIENT
  Sex: Female

DRUGS (1)
  1. ALCARE PLUS [Suspect]
     Active Substance: ALCOHOL

REACTIONS (2)
  - Erythema [None]
  - Peripheral swelling [None]

NARRATIVE: CASE EVENT DATE: 20140630
